FAERS Safety Report 6816728-X (Version None)
Quarter: 2010Q3

REPORT INFORMATION
  Report Type: 
  Country: None (occurrence: None)
  Receive Date: 20100706
  Receipt Date: 20100622
  Transmission Date: 20110219
  Serious: Yes (Other)
  Sender: FDA-Public Use
  Company Number: PHHY2010CA41838

PATIENT
  Sex: Female

DRUGS (1)
  1. ACLASTA [Suspect]
     Indication: OSTEOPOROSIS
     Dosage: UNK
     Dates: start: 20090826

REACTIONS (4)
  - ARTHRALGIA [None]
  - ARTIFICIAL CROWN PROCEDURE [None]
  - CATARACT [None]
  - ENDODONTIC PROCEDURE [None]
